FAERS Safety Report 25413402 (Version 1)
Quarter: 2025Q2

REPORT INFORMATION
  Report Type: Spontaneous
  Country: US (occurrence: None)
  Receive Date: 20250609
  Receipt Date: 20250609
  Transmission Date: 20250716
  Serious: No
  Sender: FDA-CTU
  Company Number: None

PATIENT
  Sex: Female

DRUGS (9)
  1. KESIMPTA [Suspect]
     Active Substance: OFATUMUMAB
     Indication: Relapsing-remitting multiple sclerosis
     Route: 058
     Dates: start: 20250215
  2. LEVOTHYROXINE [Concomitant]
     Active Substance: LEVOTHYROXINE
  3. MIRENA [Concomitant]
     Active Substance: LEVONORGESTREL
  4. KESIMPTA [Concomitant]
     Active Substance: OFATUMUMAB
  5. ZOFRAN [Concomitant]
     Active Substance: ONDANSETRON HYDROCHLORIDE
  6. SPIRONOLACTONE [Concomitant]
     Active Substance: SPIRONOLACTONE
  7. VITAMINS [Concomitant]
     Active Substance: VITAMINS
  8. ALLERGY MEDICATION [Concomitant]
     Active Substance: DIPHENHYDRAMINE HYDROCHLORIDE
  9. CLOTRIMIZOLE [Concomitant]

REACTIONS (8)
  - Acne [None]
  - Fungal skin infection [None]
  - Sensitive skin [None]
  - Pain of skin [None]
  - Skin burning sensation [None]
  - Application site pain [None]
  - Application site pain [None]
  - Nausea [None]
